FAERS Safety Report 9400248 (Version 1)
Quarter: 2013Q3

REPORT INFORMATION
  Report Type: Spontaneous
  Country: US (occurrence: US)
  Receive Date: 20130715
  Receipt Date: 20130715
  Transmission Date: 20140515
  Serious: No
  Sender: FDA-Public Use
  Company Number: US-US-EMD SERONO, INC.-7144214

PATIENT
  Age: 70 Year
  Sex: Male

DRUGS (1)
  1. REBIF [Suspect]
     Indication: MULTIPLE SCLEROSIS
     Route: 058
     Dates: start: 20100624

REACTIONS (4)
  - Rectal haemorrhage [Recovered/Resolved]
  - Weight fluctuation [Not Recovered/Not Resolved]
  - Injection site injury [Unknown]
  - Hypoaesthesia [Unknown]
